FAERS Safety Report 17562293 (Version 1)
Quarter: 2020Q1

REPORT INFORMATION
  Report Type: Spontaneous
  Country: PT (occurrence: PT)
  Receive Date: 20200319
  Receipt Date: 20200319
  Transmission Date: 20200409
  Serious: Yes (Disabling)
  Sender: FDA-Public Use
  Company Number: PT-MYLANLABS-2020M1028580

PATIENT
  Age: 46 Year
  Sex: Male
  Weight: 89 kg

DRUGS (2)
  1. TUROX [Suspect]
     Active Substance: ETORICOXIB
     Indication: PRODUCT USED FOR UNKNOWN INDICATION
     Dosage: 1 CP AO PEQUENO ALMOCO
     Route: 048
     Dates: start: 20200206, end: 20200213
  2. FLEXIBAN [Suspect]
     Active Substance: CYCLOBENZAPRINE
     Indication: PRODUCT USED FOR UNKNOWN INDICATION
     Dosage: 1CP AO DEITAR
     Dates: start: 20200206, end: 20200213

REACTIONS (4)
  - Fluid retention [Unknown]
  - Insomnia [Unknown]
  - Dizziness [Unknown]
  - Hallucination [Unknown]

NARRATIVE: CASE EVENT DATE: 20200212
